FAERS Safety Report 8605677-2 (Version None)
Quarter: 2012Q3

REPORT INFORMATION
  Report Type: 
  Country: None (occurrence: None)
  Receive Date: 20120820
  Receipt Date: 20120809
  Transmission Date: 20120928
  Serious: Yes (Hospitalization, Other)
  Sender: FDA-Public Use
  Company Number: US-ROCHE-1061209

PATIENT
  Sex: Male
  Weight: 79.45 kg

DRUGS (2)
  1. ACCUTANE [Suspect]
     Indication: ACNE
     Dates: start: 19981001, end: 19990301
  2. ACCUTANE [Suspect]
     Dates: start: 19990901, end: 19991001

REACTIONS (5)
  - CROHN'S DISEASE [None]
  - INFLAMMATORY BOWEL DISEASE [None]
  - RECTAL POLYP [None]
  - INTESTINAL OBSTRUCTION [None]
  - DEPRESSION [None]
